FAERS Safety Report 6706441-1 (Version None)
Quarter: 2010Q2

REPORT INFORMATION
  Report Type: 
  Country: None (occurrence: None)
  Receive Date: 20100503
  Receipt Date: 20100423
  Transmission Date: 20101027
  Serious: Yes (Hospitalization)
  Sender: FDA-Public Use
  Company Number: GB-AMGEN-US408479

PATIENT
  Sex: Female
  Weight: 51 kg

DRUGS (10)
  1. ENBREL [Suspect]
     Indication: RHEUMATOID ARTHRITIS
     Route: 058
     Dates: start: 20080918, end: 20091015
  2. CITALOPRAM [Concomitant]
     Dosage: UNKNOWN
     Route: 065
  3. ACETAMINOPHEN W/ PROPOXYPHENE HCL [Concomitant]
     Dosage: UNKNOWN
     Route: 065
  4. CALCIUM CARBONATE [Concomitant]
     Dosage: UNKNOWN
     Route: 065
  5. ROFECOXIB [Concomitant]
     Dosage: UNKNOWN
     Route: 065
  6. METHOTREXATE [Concomitant]
     Dosage: UNKNOWN
     Route: 065
  7. FOLIC ACID [Concomitant]
     Dosage: UNKNOWN
     Route: 065
  8. ETODOLAC [Concomitant]
     Dosage: UNKNOWN
     Route: 065
  9. ALENDRONIC ACID [Concomitant]
     Dosage: UNKNOWN
     Route: 065
  10. ERGOCALCIFEROL [Concomitant]
     Dosage: UNKNOWN
     Route: 065

REACTIONS (2)
  - IMPAIRED HEALING [None]
  - STAPHYLOCOCCAL INFECTION [None]
